FAERS Safety Report 23842410 (Version 1)
Quarter: 2024Q2

REPORT INFORMATION
  Report Type: Report from Study
  Country: CO (occurrence: CO)
  Receive Date: 20240510
  Receipt Date: 20240510
  Transmission Date: 20240716
  Serious: Yes (Death, Other)
  Sender: FDA-Public Use
  Company Number: CO-JNJFOC-20240519430

PATIENT
  Age: 77 Year
  Sex: Male
  Weight: 61 kg

DRUGS (1)
  1. DARATUMUMAB [Suspect]
     Active Substance: DARATUMUMAB
     Indication: Plasma cell myeloma
     Dosage: LAST ADMINISTRATION DATE 03/APR/2024
     Route: 065
     Dates: start: 20220616

REACTIONS (3)
  - Plasma cell myeloma [Fatal]
  - Acute respiratory distress syndrome [Unknown]
  - Neurological symptom [Unknown]
